FAERS Safety Report 8309818-6 (Version None)
Quarter: 2012Q2

REPORT INFORMATION
  Report Type: 
  Country: None (occurrence: None)
  Receive Date: 20120425
  Receipt Date: 20120419
  Transmission Date: 20120825
  Serious: Yes (Death, Other)
  Sender: FDA-Public Use
  Company Number: PHHY2012JP024955

PATIENT
  Sex: Male

DRUGS (20)
  1. CLOZARIL [Suspect]
     Indication: SCHIZOPHRENIA, UNDIFFERENTIATED TYPE
     Dosage: 12.5 MG, DAILY
     Route: 048
     Dates: start: 20110630, end: 20110701
  2. CLOZARIL [Suspect]
     Dosage: 500 MG, DAILY
     Route: 048
     Dates: start: 20110905, end: 20111004
  3. CLOZARIL [Suspect]
     Dosage: 600 MG, DAILY
     Route: 048
     Dates: start: 20111005
  4. CLOZARIL [Suspect]
     Dosage: 75 MG, DAILY
     Route: 048
     Dates: start: 20110707, end: 20110708
  5. CLOZARIL [Suspect]
     Dosage: 100 MG, DAILY
     Route: 048
     Dates: start: 20110709, end: 20110710
  6. CLOZARIL [Suspect]
     Dosage: 400 MG, DAILY
     Route: 048
     Dates: start: 20110810, end: 20110821
  7. SILECE [Suspect]
     Indication: SCHIZOPHRENIA, UNDIFFERENTIATED TYPE
     Dosage: 2 MG, DAILY
     Route: 048
     Dates: start: 20110223, end: 20120314
  8. AMOXAPINE [Concomitant]
     Dosage: 100 MG, UNK
     Route: 048
  9. TAMSULOSIN HCL [Concomitant]
     Dosage: 0.2 MG, UNK
     Route: 048
     Dates: start: 20110809
  10. AMOXAPINE [Concomitant]
     Dosage: 75 MG, UNK
     Route: 048
  11. CLOZARIL [Suspect]
     Dosage: 25 MG, DAILY
     Route: 048
     Dates: start: 20110702, end: 20110703
  12. CLOZARIL [Suspect]
     Dosage: 50MG, DAILY
     Route: 048
     Dates: start: 20110704, end: 20110706
  13. CLOZARIL [Suspect]
     Dosage: 300 MG, DAILY
     Route: 048
     Dates: start: 20110725, end: 20110809
  14. CLOZARIL [Suspect]
     Dosage: 125 MG, DAILY
     Route: 048
     Dates: start: 20110711, end: 20110713
  15. CLOZARIL [Suspect]
     Dosage: 150 MG, DAILY
     Route: 048
     Dates: start: 20110714, end: 20110716
  16. CLOZARIL [Suspect]
     Dosage: 200 MG, DAILY
     Route: 048
     Dates: start: 20110717, end: 20110724
  17. CLOZARIL [Suspect]
     Dosage: 450 MG, DAILY
     Route: 048
     Dates: start: 20110822, end: 20110904
  18. PHENOBARBITAL TAB [Suspect]
     Indication: SCHIZOPHRENIA, UNDIFFERENTIATED TYPE
     Dosage: 1 DF, UNK
     Route: 048
     Dates: start: 20111116, end: 20120314
  19. AMOXAPINE [Concomitant]
     Indication: SCHIZOPHRENIA, UNDIFFERENTIATED TYPE
     Dosage: 25 MG, UNK
     Route: 048
     Dates: start: 20111102
  20. QUETIAPINE FUMARATE [Concomitant]
     Dosage: 100 MG, DAILY
     Route: 048
     Dates: start: 20110629, end: 20110705

REACTIONS (5)
  - RESPIRATORY ARREST [None]
  - CHOKING [None]
  - DYSPHAGIA [None]
  - ASPIRATION [None]
  - ASPHYXIA [None]
